FAERS Safety Report 13320219 (Version 1)
Quarter: 2017Q1

REPORT INFORMATION
  Report Type: Spontaneous
  Country: US (occurrence: US)
  Receive Date: 20170309
  Receipt Date: 20170309
  Transmission Date: 20170428
  Serious: No
  Sender: FDA-Public Use
  Company Number: US-BIOGEN-2017BI00366084

PATIENT
  Sex: Male

DRUGS (1)
  1. TECFIDERA [Suspect]
     Active Substance: DIMETHYL FUMARATE
     Indication: MULTIPLE SCLEROSIS
     Route: 065
     Dates: start: 20140221

REACTIONS (6)
  - Amnesia [Unknown]
  - Vision blurred [Unknown]
  - Gastric disorder [Unknown]
  - Depression [Unknown]
  - Decreased appetite [Unknown]
  - Memory impairment [Unknown]
